FAERS Safety Report 8138237-0 (Version None)
Quarter: 2012Q1

REPORT INFORMATION
  Report Type: 
  Country: None (occurrence: None)
  Receive Date: 20120215
  Receipt Date: 20120211
  Transmission Date: 20120608
  Serious: Yes (Death)
  Sender: FDA-Public Use
  Company Number: PHHY2012BR012214

PATIENT
  Sex: Male

DRUGS (2)
  1. EXELON [Suspect]
     Dosage: 3 MG, UNK
  2. EXELON [Suspect]
     Dosage: 9.5 MG\24H (18MG\10CM2)
     Route: 062

REACTIONS (1)
  - DEATH [None]
